FAERS Safety Report 7775311-2 (Version None)
Quarter: 2011Q3

REPORT INFORMATION
  Report Type: 
  Country: None (occurrence: None)
  Receive Date: 20110921
  Receipt Date: 20110908
  Transmission Date: 20111222
  Serious: Yes (Hospitalization, Other)
  Sender: FDA-Public Use
  Company Number: 2011P1008803

PATIENT
  Sex: Female

DRUGS (2)
  1. FENTANYL [Suspect]
     Indication: PAIN
     Dosage: 2 PATCHES; Q72H; TDER
     Route: 062
     Dates: start: 20050101
  2. FENTANYL [Suspect]
     Indication: PANCREATITIS CHRONIC
     Dosage: 2 PATCHES; Q72H; TDER
     Route: 062
     Dates: start: 20050101

REACTIONS (3)
  - HYPERHIDROSIS [None]
  - VOMITING [None]
  - OESOPHAGEAL IRRITATION [None]
